FAERS Safety Report 5425857-7 (Version None)
Quarter: 2007Q3

REPORT INFORMATION
  Report Type: 
  Country: None (occurrence: None)
  Receive Date: 20070823
  Receipt Date: 20070814
  Transmission Date: 20080115
  Serious: Yes (Hospitalization)
  Sender: FDA-Public Use
  Company Number: 236431K07USA

PATIENT
  Age: 38 Year
  Sex: Female
  Weight: 108.8633 kg

DRUGS (2)
  1. REBIF [Suspect]
     Indication: MULTIPLE SCLEROSIS
     Dosage: 44 MCG, 3 IN 1 WEEKS, SUBCUTANEOUS
     Route: 058
     Dates: start: 20070123, end: 20070712
  2. NARCOTICS (ALL OTHER THERAPEUTIC PRODUCTS) [Suspect]

REACTIONS (5)
  - BLOOD PRESSURE DECREASED [None]
  - CHOLECYSTITIS INFECTIVE [None]
  - COMA [None]
  - RESPIRATORY ARREST [None]
  - RESPIRATORY FAILURE [None]
